FAERS Safety Report 10670665 (Version 1)
Quarter: 2014Q4

REPORT INFORMATION
  Report Type: Spontaneous
  Country: CA (occurrence: None)
  Receive Date: 20141219
  Receipt Date: 20141219
  Transmission Date: 20150529
  Serious: No
  Sender: FDA-Public Use
  Company Number: A1089293A

PATIENT
  Age: 36 Year
  Sex: Female

DRUGS (8)
  1. PAROXETINE HYDROCHLORIDE. [Suspect]
     Active Substance: PAROXETINE HYDROCHLORIDE
     Indication: ILL-DEFINED DISORDER
  2. NICOTINE. [Suspect]
     Active Substance: NICOTINE
     Indication: ILL-DEFINED DISORDER
  3. OXYCODONE HYDROCHLORIDE. [Suspect]
     Active Substance: OXYCODONE HYDROCHLORIDE
     Indication: PRODUCT USED FOR UNKNOWN INDICATION
  4. FOLIC ACID. [Suspect]
     Active Substance: FOLIC ACID
     Indication: ILL-DEFINED DISORDER
  5. DICLECTIN [Suspect]
     Active Substance: DOXYLAMINE\PYRIDOXINE
     Indication: ILL-DEFINED DISORDER
  6. SUBOXONE [Suspect]
     Active Substance: BUPRENORPHINE HYDROCHLORIDE\NALOXONE HYDROCHLORIDE
     Indication: ILL-DEFINED DISORDER
  7. BUPRENORPHINE HCL [Suspect]
     Active Substance: BUPRENORPHINE HYDROCHLORIDE
     Indication: ILL-DEFINED DISORDER
  8. PRENATAL VITAMINS [Suspect]
     Active Substance: VITAMINS
     Indication: ILL-DEFINED DISORDER

REACTIONS (6)
  - Pre-eclampsia [None]
  - Premature delivery [None]
  - Hepatic enzyme increased [None]
  - Hypertension [None]
  - Exposure during pregnancy [None]
  - Non-alcoholic steatohepatitis [None]
